FAERS Safety Report 21984309 (Version 1)
Quarter: 2023Q1

REPORT INFORMATION
  Report Type: Spontaneous
  Country: US (occurrence: None)
  Receive Date: 20230209
  Receipt Date: 20230209
  Transmission Date: 20230417
  Serious: Yes (Other)
  Sender: FDA-Public Use
  Company Number: None

PATIENT
  Age: 32 Year
  Sex: Female
  Weight: 94.35 kg

DRUGS (1)
  1. SUBOXONE [Suspect]
     Active Substance: BUPRENORPHINE HYDROCHLORIDE\NALOXONE HYDROCHLORIDE
     Indication: Drug dependence
     Dosage: 8MG DAILY SL
     Route: 060
     Dates: start: 20220803, end: 20230206

REACTIONS (3)
  - Dermatitis allergic [None]
  - Headache [None]
  - Nausea [None]

NARRATIVE: CASE EVENT DATE: 20220803
